FAERS Safety Report 17729830 (Version 1)
Quarter: 2020Q2

REPORT INFORMATION
  Report Type: Spontaneous
  Country: US (occurrence: US)
  Receive Date: 20200409
  Receipt Date: 20200409
  Transmission Date: 20200714
  Serious: No
  Sender: FDA-Public Use
  Company Number: None

PATIENT
  Age: 16 Year
  Sex: Female

DRUGS (3)
  1. JUUL (DEVICE\NICOTINE) [Suspect]
     Active Substance: DEVICE\NICOTINE
  2. ARTISANAL CANNABIDIOL [Suspect]
     Active Substance: CANNABIDIOL\HERBALS
  3. LAMOTRIGINE. [Suspect]
     Active Substance: LAMOTRIGINE

REACTIONS (5)
  - Seizure [None]
  - Electronic cigarette user [None]
  - Blepharospasm [None]
  - Generalised tonic-clonic seizure [None]
  - Tonic clonic movements [None]

NARRATIVE: CASE EVENT DATE: 20190714
